FAERS Safety Report 24299383 (Version 1)
Quarter: 2024Q3

REPORT INFORMATION
  Report Type: Spontaneous
  Country: US (occurrence: None)
  Receive Date: 20240906
  Receipt Date: 20240906
  Transmission Date: 20241017
  Serious: Yes (Other)
  Sender: Public
  Company Number: None

PATIENT
  Age: 67 Year
  Sex: Female
  Weight: 53.55 kg

DRUGS (1)
  1. PRIVIGEN [Suspect]
     Active Substance: HUMAN IMMUNOGLOBULIN G
     Indication: Guillain-Barre syndrome
     Dosage: 100 G GRAM(S) 1 CYCLE ONLY INTRAVENOUS
     Route: 042
     Dates: start: 20240820, end: 20240824

REACTIONS (4)
  - Mucosal inflammation [None]
  - Erythema [None]
  - Rash [None]
  - Allergic reaction to excipient [None]

NARRATIVE: CASE EVENT DATE: 20240904
